FAERS Safety Report 18188708 (Version 1)
Quarter: 2020Q3

REPORT INFORMATION
  Report Type: Spontaneous
  Country: JP (occurrence: JP)
  Receive Date: 20200824
  Receipt Date: 20200824
  Transmission Date: 20201103
  Serious: Yes (Hospitalization, Other)
  Sender: FDA-Public Use
  Company Number: JP-GLAXOSMITHKLINE-JP2020JPN164880

PATIENT
  Age: 13 Year
  Sex: Male

DRUGS (3)
  1. SERETIDE [Suspect]
     Active Substance: FLUTICASONE PROPIONATE\SALMETEROL XINAFOATE
     Indication: ASTHMA
     Dosage: UNK
     Route: 055
  2. THEOPHYLLINE [Concomitant]
     Active Substance: THEOPHYLLINE ANHYDROUS
     Indication: ASTHMA
     Dosage: UNK
  3. OMALIZUMAB (GENETICAL RECOMBINATION) [Concomitant]
     Active Substance: OMALIZUMAB
     Indication: ASTHMA
     Dosage: UNK

REACTIONS (8)
  - Wheezing [Recovering/Resolving]
  - Condition aggravated [Recovering/Resolving]
  - Diffuse panbronchiolitis [Unknown]
  - Chronic sinusitis [Unknown]
  - Hypoxia [Unknown]
  - Productive cough [Recovering/Resolving]
  - Drug ineffective [Unknown]
  - Respiratory distress [Recovering/Resolving]
